FAERS Safety Report 24607807 (Version 1)
Quarter: 2024Q4

REPORT INFORMATION
  Report Type: Spontaneous
  Country: US (occurrence: None)
  Receive Date: 20241111
  Receipt Date: 20241111
  Transmission Date: 20250115
  Serious: Yes (Disabling)
  Sender: Public
  Company Number: None

PATIENT
  Sex: Male
  Weight: 78.75 kg

DRUGS (6)
  1. BIOTIN\FINASTERIDE\KETOCONAZOLE\MINOXIDIL [Suspect]
     Active Substance: BIOTIN\FINASTERIDE\KETOCONAZOLE\MINOXIDIL
     Indication: Alopecia
     Dosage: 4 SPRAY(S) DAILY TOPICAL
     Route: 061
     Dates: start: 20240424, end: 20241025
  2. EDURANT [Concomitant]
     Active Substance: RILPIVIRINE HYDROCHLORIDE
  3. EMTREVA [Concomitant]
  4. RITONAVIR [Concomitant]
     Active Substance: RITONAVIR
  5. ATAZANVIR [Concomitant]
  6. WELLBUTRIN XL [Concomitant]
     Active Substance: BUPROPION HYDROCHLORIDE

REACTIONS (3)
  - Depression [None]
  - Loss of libido [None]
  - Erectile dysfunction [None]
